FAERS Safety Report 13384139 (Version 1)
Quarter: 2017Q1

REPORT INFORMATION
  Report Type: Spontaneous
  Country: US (occurrence: US)
  Receive Date: 20170329
  Receipt Date: 20170329
  Transmission Date: 20170429
  Serious: Yes (Life-Threatening, Hospitalization)
  Sender: FDA-Public Use
  Company Number: None

PATIENT
  Age: 70 Year
  Sex: Male
  Weight: 134.26 kg

DRUGS (1)
  1. LISINOPRIL. [Suspect]
     Active Substance: LISINOPRIL
     Indication: HYPERTENSION
     Route: 048
     Dates: start: 20050328, end: 20170105

REACTIONS (10)
  - Pharyngeal oedema [None]
  - Respiratory distress [None]
  - Eyelid oedema [None]
  - Hypersensitivity [None]
  - Swollen tongue [None]
  - Dysphagia [None]
  - Urticaria [None]
  - Rash pruritic [None]
  - Angioedema [None]
  - Lip swelling [None]

NARRATIVE: CASE EVENT DATE: 20170105
